FAERS Safety Report 14039970 (Version 2)
Quarter: 2018Q4

REPORT INFORMATION
  Report Type: Report from Study
  Country: None (occurrence: IT)
  Receive Date: 20171004
  Receipt Date: 20181009
  Transmission Date: 20190204
  Serious: Yes (Life-Threatening, Other)
  Sender: FDA-Public Use
  Company Number: IT-BAUSCH-BL-2017-028363

PATIENT
  Age: 50 Year
  Sex: Male

DRUGS (3)
  1. SIMEPREVIR [Suspect]
     Active Substance: SIMEPREVIR
     Indication: CHRONIC HEPATITIS C
     Route: 065
  2. SOFOSBUVIR [Suspect]
     Active Substance: SOFOSBUVIR
     Indication: CHRONIC HEPATITIS C
     Route: 065
  3. RIBAVIRIN. [Suspect]
     Active Substance: RIBAVIRIN
     Indication: CHRONIC HEPATITIS C
     Route: 065

REACTIONS (2)
  - Hepatocellular carcinoma [Unknown]
  - Drug ineffective [Unknown]
